FAERS Safety Report 9199964 (Version 4)
Quarter: 2013Q4

REPORT INFORMATION
  Report Type: Spontaneous
  Country: CA (occurrence: CA)
  Receive Date: 20130329
  Receipt Date: 20131115
  Transmission Date: 20140711
  Serious: Yes (Death, Hospitalization)
  Sender: FDA-Public Use
  Company Number: CA-GLAXOSMITHKLINE-A0994259A

PATIENT
  Sex: Male

DRUGS (5)
  1. VOTRIENT [Suspect]
     Indication: SARCOMA
     Dosage: 800MG PER DAY
     Route: 048
     Dates: start: 20120809
  2. NAPROXEN [Concomitant]
  3. OXYCODONE [Concomitant]
  4. FLURAZEPAM [Concomitant]
  5. COPHYLAC [Concomitant]

REACTIONS (9)
  - Inguinal mass [Unknown]
  - Local swelling [Not Recovered/Not Resolved]
  - Pain in extremity [Not Recovered/Not Resolved]
  - Blister [Unknown]
  - Burning sensation [Not Recovered/Not Resolved]
  - Erythema [Not Recovered/Not Resolved]
  - Pyrexia [Unknown]
  - Pneumothorax [Unknown]
  - Death [Fatal]
